FAERS Safety Report 7933727-5 (Version None)
Quarter: 2011Q4

REPORT INFORMATION
  Report Type: 
  Country: None (occurrence: None)
  Receive Date: 20111122
  Receipt Date: 20111114
  Transmission Date: 20120403
  Serious: Yes (Hospitalization)
  Sender: FDA-Public Use
  Company Number: US-SANOFI-AVENTIS-2011SA032994

PATIENT
  Age: 82 Year
  Sex: Female

DRUGS (6)
  1. MULTI-VITAMINS [Concomitant]
     Dates: start: 20050101
  2. LASIX [Suspect]
     Route: 065
     Dates: start: 20050101
  3. LEVOTHYROXINE SODIUM [Concomitant]
     Dates: start: 20050101
  4. INVESTIGATIONAL DRUG [Suspect]
     Indication: THROMBOSIS PROPHYLAXIS
     Route: 048
     Dates: start: 20110207, end: 20110509
  5. CALCIUM [Concomitant]
     Dates: start: 20050101
  6. POTASSIUM [Concomitant]
     Dates: start: 20050101

REACTIONS (7)
  - HYDROURETER [None]
  - FAECALOMA [None]
  - DIARRHOEA [None]
  - DEHYDRATION [None]
  - URINARY TRACT INFECTION [None]
  - LIVER FUNCTION TEST ABNORMAL [None]
  - HYPONATRAEMIA [None]
